FAERS Safety Report 5612958-3 (Version None)
Quarter: 2008Q1

REPORT INFORMATION
  Report Type: 
  Country: None (occurrence: None)
  Receive Date: 20080204
  Receipt Date: 20080130
  Transmission Date: 20080703
  Serious: Yes (Death, Hospitalization)
  Sender: FDA-Public Use
  Company Number: US-GILEAD-2008-0015154

PATIENT
  Sex: Male

DRUGS (24)
  1. AMBRISENTAN [Suspect]
     Indication: PULMONARY HYPERTENSION
     Route: 048
     Dates: start: 20070816
  2. 0XYGEN [Concomitant]
     Indication: INTERSTITIAL LUNG DISEASE
     Dosage: 3-6 LITRES
     Route: 055
     Dates: start: 20040101
  3. NORVASC [Concomitant]
     Indication: CORONARY ARTERY DISEASE
     Route: 048
     Dates: start: 20030601
  4. LASIX [Concomitant]
     Indication: CARDIAC FAILURE CONGESTIVE
     Route: 048
     Dates: start: 20060901
  5. ALDACTONE [Concomitant]
     Indication: CORONARY ARTERY DISEASE
     Route: 048
  6. ALDACTONE [Concomitant]
     Route: 048
  7. ATENOLOL [Concomitant]
     Indication: CORONARY ARTERY DISEASE
     Route: 048
     Dates: start: 20030101
  8. IMDUR [Concomitant]
     Indication: CORONARY ARTERY DISEASE
     Route: 048
     Dates: start: 20070101
  9. PREDNISONE TAB [Concomitant]
     Indication: INTERSTITIAL LUNG DISEASE
     Route: 048
     Dates: start: 20040101
  10. BENZONATATE [Concomitant]
     Indication: INTERSTITIAL LUNG DISEASE
     Route: 048
     Dates: start: 20040101
  11. GLYBURIDE [Concomitant]
     Indication: DIABETES MELLITUS
     Route: 048
     Dates: start: 20070101
  12. NITROGLYCERIN [Concomitant]
     Indication: CORONARY ARTERY DISEASE
     Route: 060
     Dates: start: 20030601
  13. LESCOL [Concomitant]
     Indication: CORONARY ARTERY DISEASE
     Route: 048
     Dates: start: 20030101
  14. QUESTRAN [Concomitant]
     Indication: HYPERCHOLESTEROLAEMIA
     Route: 048
     Dates: start: 20050101
  15. ASPIRIN [Concomitant]
     Indication: CARDIOVASCULAR EVENT PROPHYLAXIS
     Route: 048
     Dates: start: 20030601
  16. KETOPROFEN [Concomitant]
     Indication: BURSITIS
     Dates: start: 20020101, end: 20071101
  17. FISH OIL [Concomitant]
     Indication: MEDICAL DIET
     Route: 048
     Dates: start: 20050101
  18. TYLENOL WITH CODEIN [Concomitant]
     Indication: PAIN
  19. TYLENOL WITH CODEIN [Concomitant]
     Indication: GOUT
  20. BACTRIM [Concomitant]
     Indication: PROPHYLAXIS
     Route: 048
     Dates: start: 20061108
  21. ALLOPURINOL [Concomitant]
     Indication: GOUT
     Route: 048
     Dates: start: 20071026
  22. COLCHICINE [Concomitant]
     Indication: GOUT
     Route: 048
     Dates: start: 20070919
  23. MIRALAX [Concomitant]
     Indication: CONSTIPATION
  24. DOCUSATE SODIUM [Concomitant]
     Indication: CONSTIPATION PROPHYLAXIS
     Route: 048
     Dates: start: 20050101

REACTIONS (2)
  - CARDIAC ARREST [None]
  - RESPIRATORY ARREST [None]
